FAERS Safety Report 5914805-9 (Version None)
Quarter: 2008Q4

REPORT INFORMATION
  Report Type: 
  Country: None (occurrence: None)
  Receive Date: 20081008
  Receipt Date: 20081001
  Transmission Date: 20090506
  Serious: Yes (Hospitalization)
  Sender: FDA-Public Use
  Company Number: APP200800939

PATIENT
  Age: 8 Year
  Sex: Male

DRUGS (2)
  1. METHYLPREDNISOLONE [Suspect]
     Indication: LYMPHADENOPATHY
     Dosage: 10 MG/KG, DAY 1, INTRAVENOUS; 5 MG/KG, DAY 2, INTRAVENOUS
     Route: 042
  2. PREDNISONE [Suspect]
     Indication: SARCOIDOSIS
     Dosage: 1 MG/KG, 1 IN 1 D

REACTIONS (11)
  - BONE INFARCTION [None]
  - BONE MARROW DISORDER [None]
  - CONDITION AGGRAVATED [None]
  - ERYTHEMA [None]
  - FEELING HOT [None]
  - HYPOXIA [None]
  - LEUKOCYTOSIS [None]
  - LUNG CONSOLIDATION [None]
  - PAIN IN EXTREMITY [None]
  - PLEURAL EFFUSION [None]
  - PULMONARY OEDEMA [None]
